FAERS Safety Report 24842839 (Version 1)
Quarter: 2025Q1

REPORT INFORMATION
  Report Type: Report from Study
  Country: US (occurrence: US)
  Receive Date: 20250115
  Receipt Date: 20250115
  Transmission Date: 20250408
  Serious: Yes (Hospitalization)
  Sender: HRA PHARMA
  Company Number: US-ORG100014127-2024000256

PATIENT
  Age: 67 Year
  Sex: Male

DRUGS (17)
  1. LYSODREN [Suspect]
     Active Substance: MITOTANE
     Indication: Adrenal gland cancer
     Dosage: 4 TABLETS TWICE DAILY
     Dates: start: 20220405
  2. LYSODREN [Suspect]
     Active Substance: MITOTANE
     Indication: Adrenal gland cancer
     Dosage: TAKE 7 TABLETS PER DAY
  3. LYSODREN [Suspect]
     Active Substance: MITOTANE
     Indication: Adrenal gland cancer
     Dates: end: 20230721
  4. LYSODREN [Suspect]
     Active Substance: MITOTANE
     Indication: Adrenal gland cancer
     Dates: start: 20230729
  5. LYSODREN [Suspect]
     Active Substance: MITOTANE
     Indication: Adrenal gland cancer
     Dosage: 05 TABLETS PER DAY
  6. DUTASTERIDE/TAMSULOSINE EG 0,5 mg/0,4 mg [Concomitant]
     Indication: Product used for unknown indication
  7. Gabapentin capsule 300mg [Concomitant]
     Indication: Product used for unknown indication
  8. HYDROCORTISONE [Concomitant]
     Active Substance: HYDROCORTISONE
     Indication: Product used for unknown indication
  9. LASIX [Concomitant]
     Active Substance: FUROSEMIDE
     Indication: Product used for unknown indication
  10. methocarbamol tablet 500mg [Concomitant]
     Indication: Product used for unknown indication
  11. multivitamin tablet [Concomitant]
     Indication: Product used for unknown indication
  12. omega 3 capsule 340MG [Concomitant]
     Indication: Product used for unknown indication
  13. Omeprazole capsule 20mg [Concomitant]
     Indication: Product used for unknown indication
  14. oxycodone tablet 5mg [Concomitant]
     Indication: Product used for unknown indication
  15. PROPRANOLOL [Concomitant]
     Active Substance: PROPRANOLOL HYDROCHLORIDE
     Indication: Product used for unknown indication
  16. rosuvastatin tablet 10mg [Concomitant]
     Indication: Product used for unknown indication
  17. VITAMIN D CAP 1000 UNIT [Concomitant]
     Indication: Product used for unknown indication

REACTIONS (1)
  - Fatigue [Not Recovered/Not Resolved]
